FAERS Safety Report 25572556 (Version 1)
Quarter: 2025Q3

REPORT INFORMATION
  Report Type: Spontaneous
  Country: JP (occurrence: JP)
  Receive Date: 20250717
  Receipt Date: 20250717
  Transmission Date: 20251020
  Serious: Yes (Other)
  Sender: MERCK SHARP & DOHME LLC
  Company Number: JP-009507513-2307625

PATIENT
  Age: 73 Year
  Sex: Male

DRUGS (3)
  1. KEYTRUDA [Suspect]
     Active Substance: PEMBROLIZUMAB
     Indication: Non-small cell lung cancer stage III
     Route: 042
  2. CISPLATIN [Concomitant]
     Active Substance: CISPLATIN
     Route: 042
  3. GEMCITABINE [Concomitant]
     Active Substance: GEMCITABINE
     Route: 042

REACTIONS (1)
  - Febrile neutropenia [Unknown]
